FAERS Safety Report 8440186-5 (Version None)
Quarter: 2012Q2

REPORT INFORMATION
  Report Type: 
  Country: None (occurrence: None)
  Receive Date: 20120615
  Receipt Date: 20120602
  Transmission Date: 20120825
  Serious: Yes (Hospitalization)
  Sender: FDA-Public Use
  Company Number: US-ROCHE-1074892

PATIENT
  Age: 8 Year
  Sex: Male
  Weight: 22.4 kg

DRUGS (3)
  1. TEMOZOLOMIDE [Suspect]
     Indication: MEDULLOBLASTOMA
     Dosage: 150 MG/M2/DOSE OR 5 MG/KG/DOSE (FOR PATIENTS WITH BSA LESS THAN 0.5 M2) ON DAYS 1-5
     Route: 048
     Dates: start: 20120416
  2. AVASTIN [Suspect]
     Indication: MEDULLOBLASTOMA
     Dosage: OVER 30 TO 90 MINUTES ON DAYS 1 AND 15
     Route: 042
     Dates: start: 20120416
  3. IRINOTECAN HYDROCHLORIDE [Suspect]
     Indication: MEDULLOBLASTOMA
     Dosage: OVER 90 MINUTES ON DAYS 1 TO 5
     Route: 042
     Dates: start: 20120416

REACTIONS (1)
  - RASH MACULO-PAPULAR [None]
